FAERS Safety Report 8547153-1 (Version None)
Quarter: 2012Q3

REPORT INFORMATION
  Report Type: 
  Country: None (occurrence: None)
  Receive Date: 20120727
  Receipt Date: 20120221
  Transmission Date: 20120928
  Serious: No
  Sender: FDA-Public Use
  Company Number: US-ASTRAZENECA-2012SE11983

PATIENT
  Age: 49 Year
  Sex: Male
  Weight: 65.3 kg

DRUGS (13)
  1. SEROQUEL [Suspect]
     Indication: ANXIETY
     Route: 048
  2. RISPERIDONE [Concomitant]
  3. PROAIR HFA [Concomitant]
  4. CYMBALTA [Concomitant]
  5. ASPIRIN [Concomitant]
  6. VITAMIN D [Concomitant]
  7. SEROQUEL [Suspect]
     Indication: MOOD SWINGS
     Route: 048
  8. SEROQUEL [Suspect]
     Indication: PANIC ATTACK
     Route: 048
  9. SYMBICORT [Suspect]
     Route: 055
  10. ATROVENT [Concomitant]
  11. VITAMIN TAB [Concomitant]
  12. SEROQUEL [Suspect]
     Indication: BIPOLAR DISORDER
     Route: 048
  13. SPIRIVA [Concomitant]

REACTIONS (8)
  - DRUG DOSE OMISSION [None]
  - INSOMNIA [None]
  - FEELING ABNORMAL [None]
  - ASTHENIA [None]
  - FATIGUE [None]
  - IRRITABILITY [None]
  - OFF LABEL USE [None]
  - DECREASED APPETITE [None]
